FAERS Safety Report 8108389-7 (Version None)
Quarter: 2012Q1

REPORT INFORMATION
  Report Type: 
  Country: None (occurrence: None)
  Receive Date: 20120202
  Receipt Date: 20120123
  Transmission Date: 20120608
  Serious: Yes (Other)
  Sender: FDA-Public Use
  Company Number: PHHY2012JM004830

PATIENT
  Sex: Female

DRUGS (1)
  1. GLEEVEC [Suspect]
     Indication: CHRONIC MYELOID LEUKAEMIA
     Dosage: 200 MG, UNK
     Dates: start: 20100401, end: 20111001

REACTIONS (6)
  - NEOPLASM MALIGNANT [None]
  - ANAEMIA [None]
  - WHITE BLOOD CELL COUNT INCREASED [None]
  - CHRONIC MYELOID LEUKAEMIA [None]
  - NO THERAPEUTIC RESPONSE [None]
  - SPLENOMEGALY [None]
